FAERS Safety Report 10935920 (Version 1)
Quarter: 2015Q1

REPORT INFORMATION
  Report Type: Report from Study
  Country: US (occurrence: US)
  Receive Date: 20150320
  Receipt Date: 20150320
  Transmission Date: 20150721
  Serious: No
  Sender: FDA-Public Use
  Company Number: US-ABBVIE-15P-163-1351912-00

PATIENT
  Age: 60 Year
  Sex: Female

DRUGS (1)
  1. VIEKIRA PAK [Suspect]
     Active Substance: DASABUVIR\OMBITASVIR\PARITAPREVIR\RITONAVIR
     Indication: HEPATITIS C
     Dosage: 2 PINK TABLETS QAM, 1 BEIGE TABLET BID (AM+PM)-WEEKLY PAK
     Route: 048
     Dates: start: 20150222

REACTIONS (6)
  - Diarrhoea [Unknown]
  - Back pain [Unknown]
  - Insomnia [Unknown]
  - Nausea [Recovered/Resolved]
  - Somnolence [Recovered/Resolved]
  - Headache [Unknown]

NARRATIVE: CASE EVENT DATE: 201502
